FAERS Safety Report 23143435 (Version 1)
Quarter: 2023Q4

REPORT INFORMATION
  Report Type: Other
  Country: IT (occurrence: None)
  Receive Date: 20231103
  Receipt Date: 20231103
  Transmission Date: 20240109
  Serious: No
  Sender: FDA-Public Use
  Company Number: IT-ROCHE-3451004

PATIENT

DRUGS (2)
  1. OCRELIZUMAB [Suspect]
     Active Substance: OCRELIZUMAB
     Indication: Primary progressive multiple sclerosis
     Dosage: 2X 300 MG WITH A 2-WEEK INTERVAL
     Route: 042
  2. OCRELIZUMAB [Suspect]
     Active Substance: OCRELIZUMAB
     Dosage: OCR INFUSION DELAY OF AT LEAST 4 WEEKS (6 MONTHS + }/= 4 WEEKS).
     Route: 042

REACTIONS (2)
  - COVID-19 [Unknown]
  - Off label use [Unknown]
